FAERS Safety Report 8394748 (Version 17)
Quarter: 2018Q2

REPORT INFORMATION
  Report Type: Report from Study
  Country: BR (occurrence: BR)
  Receive Date: 20120207
  Receipt Date: 20180619
  Transmission Date: 20180711
  Serious: Yes (Other)
  Sender: FDA-Public Use
  Company Number: BR-ROCHE-699173

PATIENT
  Age: 59 Year
  Sex: Female
  Weight: 168 kg

DRUGS (20)
  1. MABTHERA [Suspect]
     Active Substance: RITUXIMAB
     Dosage: ROUTE: INTRAVENOUS; DOSE: 1000 MG/ML
     Route: 042
     Dates: start: 20090801, end: 20090816
  2. AMOXICILLIN. [Concomitant]
     Active Substance: AMOXICILLIN
     Route: 065
  3. PROFENID [Concomitant]
     Active Substance: KETOPROFEN
     Indication: PAIN
  4. VIOXX [Concomitant]
     Active Substance: ROFECOXIB
  5. DORFLEX [Concomitant]
     Active Substance: CAFFEINE\DIPYRONE\ORPHENADRINE
  6. DEPURA [Concomitant]
     Active Substance: CHOLECALCIFEROL
  7. MABTHERA [Suspect]
     Active Substance: RITUXIMAB
     Route: 042
     Dates: start: 20100927, end: 20101201
  8. EUTIROX [Concomitant]
     Active Substance: LEVOTHYROXINE SODIUM
     Indication: HYPOTHYROIDISM
     Route: 065
  9. GLUCOSAMINE SULFATE [Concomitant]
     Active Substance: GLUCOSAMINE SULFATE
     Dosage: DRUG REPORTED AS: GLYCOSAMIDE SULFATE
     Route: 065
  10. NIMESULIDE [Concomitant]
     Active Substance: NIMESULIDE
     Indication: PAIN
     Route: 065
  11. ARCOXIA [Suspect]
     Active Substance: ETORICOXIB
     Indication: PRODUCT USED FOR UNKNOWN INDICATION
     Route: 065
  12. MELOXICAM. [Concomitant]
     Active Substance: MELOXICAM
     Route: 065
  13. IVERMECTIN. [Concomitant]
     Active Substance: IVERMECTIN
     Route: 065
  14. EUTHYROX [Concomitant]
     Active Substance: LEVOTHYROXINE SODIUM
     Indication: HYPOTHYROIDISM
     Route: 065
  15. PHENERGAN [Concomitant]
     Active Substance: PROMETHAZINE HYDROCHLORIDE
     Indication: PREMEDICATION
  16. ACETAMINOPHEN. [Concomitant]
     Active Substance: ACETAMINOPHEN
     Dosage: FREQUENCY: EVERY 8TH
     Route: 065
  17. MABTHERA [Suspect]
     Active Substance: RITUXIMAB
     Indication: RHEUMATOID ARTHRITIS
     Dosage: LAST INFUSION: FEBRUARY 2013
     Route: 042
     Dates: start: 20090101, end: 20130215
  18. MABTHERA [Suspect]
     Active Substance: RITUXIMAB
     Dosage: FOURTH CYCLE
     Route: 042
  19. ALLEGRA [Concomitant]
     Active Substance: FEXOFENADINE HYDROCHLORIDE
  20. TILATIL [Concomitant]
     Active Substance: TENOXICAM

REACTIONS (57)
  - Hand deformity [Not Recovered/Not Resolved]
  - Blood triglycerides increased [Recovering/Resolving]
  - Gait disturbance [Recovering/Resolving]
  - Rheumatoid arthritis [Recovering/Resolving]
  - Back pain [Not Recovered/Not Resolved]
  - Skin disorder [Recovered/Resolved]
  - Gastric disorder [Unknown]
  - Pain in extremity [Not Recovered/Not Resolved]
  - Sinusitis [Unknown]
  - Arthralgia [Unknown]
  - Blood cholesterol increased [Recovering/Resolving]
  - Dysphonia [Recovered/Resolved]
  - Feeling hot [Recovered/Resolved]
  - Onychoclasis [Recovering/Resolving]
  - Nail discolouration [Not Recovered/Not Resolved]
  - Drug intolerance [Not Recovered/Not Resolved]
  - Hepatic pain [Recovering/Resolving]
  - Dyspepsia [Unknown]
  - Somnolence [Unknown]
  - Weight decreased [Not Recovered/Not Resolved]
  - Peripheral swelling [Recovered/Resolved]
  - Insomnia [Not Recovered/Not Resolved]
  - Injury [Recovering/Resolving]
  - Malaise [Recovered/Resolved]
  - Dysgeusia [Recovering/Resolving]
  - Alopecia [Not Recovered/Not Resolved]
  - Pain in extremity [Unknown]
  - Peripheral swelling [Not Recovered/Not Resolved]
  - Mouth injury [Recovering/Resolving]
  - Joint swelling [Unknown]
  - Abdominal pain upper [Recovered/Resolved]
  - Pain [Recovering/Resolving]
  - Weight increased [Unknown]
  - Cartilage injury [Recovering/Resolving]
  - Nausea [Recovered/Resolved]
  - Stomatitis [Recovered/Resolved]
  - Pain [Not Recovered/Not Resolved]
  - Abdominal distension [Recovered/Resolved]
  - Pollakiuria [Recovered/Resolved]
  - Peripheral swelling [Unknown]
  - Labyrinthitis [Not Recovered/Not Resolved]
  - Tinnitus [Not Recovered/Not Resolved]
  - Pharyngitis [Recovered/Resolved]
  - Hepatitis B [Not Recovered/Not Resolved]
  - Dysgeusia [Unknown]
  - Drug ineffective [Unknown]
  - Pain in extremity [Recovered/Resolved]
  - Swelling [Not Recovered/Not Resolved]
  - Hunger [Recovered/Resolved]
  - Arthropathy [Not Recovered/Not Resolved]
  - Dysphonia [Not Recovered/Not Resolved]
  - Ill-defined disorder [Unknown]
  - Gait disturbance [Unknown]
  - Rheumatoid arthritis [Unknown]
  - Hand deformity [Unknown]
  - Onychoclasis [Not Recovered/Not Resolved]
  - Nail disorder [Not Recovered/Not Resolved]

NARRATIVE: CASE EVENT DATE: 200909
